FAERS Safety Report 9670370 (Version 1)
Quarter: 2013Q4

REPORT INFORMATION
  Report Type: Spontaneous
  Country: JP (occurrence: JP)
  Receive Date: 20131105
  Receipt Date: 20131105
  Transmission Date: 20140711
  Serious: Yes (Other)
  Sender: FDA-Public Use
  Company Number: JP-B.I. PHARMACEUTICALS,INC./RIDGEFIELD-2013-BI-35781GL

PATIENT
  Age: 88 Year
  Sex: Female

DRUGS (4)
  1. TELMISARTAN [Suspect]
     Route: 065
  2. LEVOFLOXACIN [Suspect]
     Dosage: 500 MG
     Route: 065
     Dates: start: 2010, end: 2010
  3. GLIMEPIRIDE [Suspect]
     Route: 065
  4. PIOGLITAZONE [Suspect]
     Route: 065

REACTIONS (2)
  - Dementia [Unknown]
  - Hypoglycaemia [Unknown]
